FAERS Safety Report 10803129 (Version 1)
Quarter: 2015Q1

REPORT INFORMATION
  Report Type: Spontaneous
  Country: IL (occurrence: IL)
  Receive Date: 20150217
  Receipt Date: 20150217
  Transmission Date: 20150721
  Serious: Yes (Death, Hospitalization)
  Sender: FDA-Public Use
  Company Number: IL-ROXANE LABORATORIES, INC.-2015-RO-00252RO

PATIENT
  Age: 75 Year
  Sex: Male

DRUGS (1)
  1. METHOTREXATE [Suspect]
     Active Substance: METHOTREXATE
     Indication: PSORIASIS
     Route: 065

REACTIONS (2)
  - Toxicity to various agents [Unknown]
  - Sepsis [Fatal]
